FAERS Safety Report 8166632-2 (Version None)
Quarter: 2012Q1

REPORT INFORMATION
  Report Type: 
  Country: None (occurrence: None)
  Receive Date: 20120227
  Receipt Date: 20120217
  Transmission Date: 20120608
  Serious: Yes (Hospitalization)
  Sender: FDA-Public Use
  Company Number: JP-BRISTOL-MYERS SQUIBB COMPANY-16396269

PATIENT
  Age: 4 Decade
  Sex: Female

DRUGS (2)
  1. ABILIFY [Suspect]
     Indication: SCHIZOPHRENIA, UNDIFFERENTIATED TYPE
     Route: 048
  2. CHLORPROMAZINE HCL [Concomitant]
     Dosage: TABS

REACTIONS (9)
  - HYPERACUSIS [None]
  - PSYCHIATRIC SYMPTOM [None]
  - EUPHORIC MOOD [None]
  - PERSECUTORY DELUSION [None]
  - LOOSE ASSOCIATIONS [None]
  - HYPERKINESIA [None]
  - LOGORRHOEA [None]
  - INSOMNIA [None]
  - HALLUCINATION [None]
